FAERS Safety Report 18734206 (Version 11)
Quarter: 2022Q2

REPORT INFORMATION
  Report Type: Report from Study
  Country: US (occurrence: None)
  Receive Date: 20210113
  Receipt Date: 20220506
  Transmission Date: 20220721
  Serious: Yes (Hospitalization)
  Sender: FDA-Public Use
  Company Number: US-ROCHE-2744959

PATIENT
  Age: 66 Year
  Sex: Female
  Weight: 75.7 kg

DRUGS (82)
  1. MOSUNETUZUMAB [Suspect]
     Active Substance: MOSUNETUZUMAB
     Indication: B-cell lymphoma
     Dosage: ON 29/DEC/2020, THE PATIENT RECEIVED MOST RECENT DOSE OF MOSUNTUZUMAB 30 MG PRIOR TO SAE.
     Route: 042
     Dates: start: 20201208
  2. POLATUZUMAB VEDOTIN [Suspect]
     Active Substance: POLATUZUMAB VEDOTIN
     Indication: B-cell lymphoma
     Dosage: ON 29/DEC/2020, THE PATIENT RECEIVED MOST RECENT DOSE OF POLATUZUMAB VEDOTIN (136.26 MG) PRIOR TO SA
     Route: 042
     Dates: start: 20201208
  3. PREDNISONE [Suspect]
     Active Substance: PREDNISONE
     Indication: B-cell lymphoma
     Dosage: ON 29/DEC/2020, THE PATIENT RECEIVED MOST RECENT DOSE OF PREDNISONE (50 MG) PRIOR TO SAE.
     Route: 048
     Dates: start: 20201208
  4. CYCLOPHOSPHAMIDE [Suspect]
     Active Substance: CYCLOPHOSPHAMIDE
     Indication: B-cell lymphoma
     Dosage: ON 29/DEC/2020, THE PATIENT RECEIVED MOST RECENT DOSE OF CYCLOPHOSPHAMIDE 1400 MG PRIOR TO SAE.
     Route: 042
     Dates: start: 20201208
  5. DOXORUBICIN [Suspect]
     Active Substance: DOXORUBICIN
     Indication: B-cell lymphoma
     Dosage: ON 29/DEC/2020, THE PATIENT RECEIVED MOST RECENT DOSE OF DOXORUBICIN (95.5 MG) PRIOR TO SAE.
     Route: 042
     Dates: start: 20201208
  6. ALLOPURINOL [Concomitant]
     Active Substance: ALLOPURINOL
     Dosage: GIVEN FOR PROPHYLAXIS
     Route: 048
     Dates: start: 20201124
  7. LORAZEPAM [Concomitant]
     Active Substance: LORAZEPAM
     Route: 048
     Dates: start: 20201124
  8. MORPHINE [Concomitant]
     Active Substance: MORPHINE
     Route: 048
     Dates: start: 20201014, end: 20210309
  9. OXYCODONE [Concomitant]
     Active Substance: OXYCODONE
     Route: 048
     Dates: start: 20201109
  10. ACETAMINOPHEN [Concomitant]
     Active Substance: ACETAMINOPHEN
     Route: 048
     Dates: start: 20201209, end: 20201209
  11. ACETAMINOPHEN [Concomitant]
     Active Substance: ACETAMINOPHEN
     Route: 048
     Dates: start: 20201215, end: 20201215
  12. ACETAMINOPHEN [Concomitant]
     Active Substance: ACETAMINOPHEN
     Route: 048
     Dates: start: 20201222, end: 20201222
  13. ACETAMINOPHEN [Concomitant]
     Active Substance: ACETAMINOPHEN
     Route: 048
     Dates: start: 20201229, end: 20201229
  14. ACETAMINOPHEN [Concomitant]
     Active Substance: ACETAMINOPHEN
     Route: 048
     Dates: start: 20210119, end: 20210119
  15. ACETAMINOPHEN [Concomitant]
     Active Substance: ACETAMINOPHEN
     Route: 048
     Dates: start: 20210209, end: 20210209
  16. ACETAMINOPHEN [Concomitant]
     Active Substance: ACETAMINOPHEN
     Route: 048
     Dates: start: 20210302, end: 20210302
  17. ALTEPLASE [Concomitant]
     Active Substance: ALTEPLASE
     Dosage: GIVEN FOR PROPHYLAXIS
     Route: 050
     Dates: start: 20201209, end: 20201209
  18. ALTEPLASE [Concomitant]
     Active Substance: ALTEPLASE
     Route: 042
     Dates: start: 20201215, end: 20201215
  19. ONDANSETRON [Concomitant]
     Active Substance: ONDANSETRON
     Dosage: GIVEN FOR PROPHYLAXIS
     Route: 042
     Dates: start: 20201208, end: 20201208
  20. ONDANSETRON [Concomitant]
     Active Substance: ONDANSETRON
     Route: 042
     Dates: start: 20201210, end: 20201210
  21. ONDANSETRON [Concomitant]
     Active Substance: ONDANSETRON
     Route: 048
     Dates: start: 20201215, end: 20201215
  22. DIPHENHYDRAMINE [Concomitant]
     Active Substance: DIPHENHYDRAMINE
     Dosage: GIVEN FOR PROPHYLAXIS
     Route: 048
     Dates: start: 20201208, end: 20201208
  23. DIPHENHYDRAMINE [Concomitant]
     Active Substance: DIPHENHYDRAMINE
     Route: 048
     Dates: start: 20201215, end: 20201215
  24. DIPHENHYDRAMINE [Concomitant]
     Active Substance: DIPHENHYDRAMINE
     Route: 048
     Dates: start: 20201222, end: 20201222
  25. DIPHENHYDRAMINE [Concomitant]
     Active Substance: DIPHENHYDRAMINE
     Route: 048
     Dates: start: 20201229, end: 20201229
  26. DIPHENHYDRAMINE [Concomitant]
     Active Substance: DIPHENHYDRAMINE
     Route: 048
     Dates: start: 20200119, end: 20201229
  27. DIPHENHYDRAMINE [Concomitant]
     Active Substance: DIPHENHYDRAMINE
     Route: 048
     Dates: start: 20210209, end: 20210209
  28. DIPHENHYDRAMINE [Concomitant]
     Active Substance: DIPHENHYDRAMINE
     Route: 048
     Dates: start: 20210119, end: 20210119
  29. DIPHENHYDRAMINE [Concomitant]
     Active Substance: DIPHENHYDRAMINE
     Route: 048
     Dates: start: 20210302, end: 20210302
  30. CEFEPIME [Concomitant]
     Active Substance: CEFEPIME HYDROCHLORIDE
     Route: 042
     Dates: start: 20201209, end: 20201209
  31. LOVENOX [Concomitant]
     Active Substance: ENOXAPARIN SODIUM
     Dosage: GIVEN FOR PROPHYLAXIS
     Route: 058
     Dates: start: 20201209, end: 20201209
  32. LOVENOX [Concomitant]
     Active Substance: ENOXAPARIN SODIUM
     Route: 058
     Dates: start: 20201215, end: 20201215
  33. LOVENOX [Concomitant]
     Active Substance: ENOXAPARIN SODIUM
     Route: 058
     Dates: start: 20210104, end: 20210110
  34. METHOTREXATE [Concomitant]
     Active Substance: METHOTREXATE
     Dosage: GIVEN FOR PROPHYLAXIS
     Route: 008
     Dates: start: 20201209, end: 20201209
  35. TRIMETHOPRIM [Concomitant]
     Active Substance: TRIMETHOPRIM
     Dosage: GIVEN FOR PROPHYLAXIS
     Route: 048
     Dates: start: 20201217, end: 20210409
  36. FLUCONAZOLE [Concomitant]
     Active Substance: FLUCONAZOLE
     Dosage: GIVEN FOR PROPHYLAXIS
     Route: 048
     Dates: start: 20201216, end: 20210111
  37. HYDROCORTISONE [Concomitant]
     Active Substance: HYDROCORTISONE
     Route: 061
     Dates: start: 20200112
  38. SODIUM CHLORIDE [Concomitant]
     Active Substance: SODIUM CHLORIDE
     Route: 042
     Dates: start: 20210112, end: 20210112
  39. SODIUM CHLORIDE [Concomitant]
     Active Substance: SODIUM CHLORIDE
     Route: 042
     Dates: start: 20210126, end: 20210202
  40. SODIUM CHLORIDE [Concomitant]
     Active Substance: SODIUM CHLORIDE
     Route: 042
     Dates: start: 20210205, end: 20210205
  41. SODIUM CHLORIDE [Concomitant]
     Active Substance: SODIUM CHLORIDE
     Route: 042
     Dates: start: 20210208, end: 20210208
  42. SODIUM CHLORIDE [Concomitant]
     Active Substance: SODIUM CHLORIDE
     Route: 042
     Dates: start: 20210210, end: 20210210
  43. SODIUM CHLORIDE [Concomitant]
     Active Substance: SODIUM CHLORIDE
     Route: 042
     Dates: start: 20210212, end: 20210212
  44. SODIUM CHLORIDE [Concomitant]
     Active Substance: SODIUM CHLORIDE
     Route: 048
     Dates: start: 20210216, end: 20210219
  45. SODIUM CHLORIDE [Concomitant]
     Active Substance: SODIUM CHLORIDE
     Route: 042
     Dates: start: 20210223, end: 20210223
  46. SODIUM CHLORIDE [Concomitant]
     Active Substance: SODIUM CHLORIDE
     Dosage: 500 OTHER
     Route: 042
     Dates: start: 20210225, end: 20210225
  47. SODIUM CHLORIDE [Concomitant]
     Active Substance: SODIUM CHLORIDE
     Route: 042
     Dates: start: 20210301, end: 20210301
  48. SODIUM CHLORIDE [Concomitant]
     Active Substance: SODIUM CHLORIDE
     Route: 042
     Dates: start: 20210303, end: 20210303
  49. SODIUM CHLORIDE [Concomitant]
     Active Substance: SODIUM CHLORIDE
     Route: 042
     Dates: start: 20210104, end: 20210303
  50. SODIUM CHLORIDE [Concomitant]
     Active Substance: SODIUM CHLORIDE
     Route: 042
     Dates: start: 20210106, end: 20210106
  51. OLANZAPINE [Concomitant]
     Active Substance: OLANZAPINE
     Route: 048
     Dates: start: 20210126
  52. CINVANTI [Concomitant]
     Active Substance: APREPITANT
     Route: 042
     Dates: start: 20210119, end: 20210119
  53. CINVANTI [Concomitant]
     Active Substance: APREPITANT
     Route: 042
     Dates: start: 20210209, end: 20210209
  54. CINVANTI [Concomitant]
     Active Substance: APREPITANT
     Route: 042
     Dates: start: 20210302, end: 20210302
  55. CINVANTI [Concomitant]
     Active Substance: APREPITANT
     Route: 042
     Dates: start: 20201229, end: 20201229
  56. UDENYCA [Concomitant]
     Active Substance: PEGFILGRASTIM-CBQV
     Route: 058
     Dates: start: 20201210, end: 20201210
  57. UDENYCA [Concomitant]
     Active Substance: PEGFILGRASTIM-CBQV
     Route: 058
     Dates: start: 20210210, end: 20210210
  58. UDENYCA [Concomitant]
     Active Substance: PEGFILGRASTIM-CBQV
     Route: 058
     Dates: start: 20210303, end: 20210303
  59. UDENYCA [Concomitant]
     Active Substance: PEGFILGRASTIM-CBQV
     Route: 058
     Dates: start: 20201230, end: 20201230
  60. POTASSIUM CHLORIDE [Concomitant]
     Active Substance: POTASSIUM CHLORIDE
     Dosage: 10 OTHER
     Route: 042
     Dates: start: 20210126, end: 20210126
  61. POTASSIUM CHLORIDE [Concomitant]
     Active Substance: POTASSIUM CHLORIDE
     Dosage: 10 OTHER
     Route: 042
     Dates: start: 20210131, end: 20210131
  62. POTASSIUM CHLORIDE [Concomitant]
     Active Substance: POTASSIUM CHLORIDE
     Dosage: 40 OTHER
     Route: 048
     Dates: start: 20210210, end: 20210210
  63. POTASSIUM CHLORIDE [Concomitant]
     Active Substance: POTASSIUM CHLORIDE
     Dosage: 10 OTHER
     Route: 042
     Dates: start: 20210212, end: 20210212
  64. POTASSIUM CHLORIDE [Concomitant]
     Active Substance: POTASSIUM CHLORIDE
     Dosage: 10 OTHER
     Route: 048
     Dates: start: 20210223
  65. POTASSIUM CHLORIDE [Concomitant]
     Active Substance: POTASSIUM CHLORIDE
     Dosage: 60 OTHER
     Route: 048
     Dates: start: 20210105, end: 20210105
  66. POTASSIUM CHLORIDE [Concomitant]
     Active Substance: POTASSIUM CHLORIDE
     Dosage: 10 OTHER
     Route: 048
     Dates: start: 20210105, end: 20210105
  67. POTASSIUM CHLORIDE [Concomitant]
     Active Substance: POTASSIUM CHLORIDE
     Dosage: 10 OTHER??Q2H
     Route: 048
     Dates: start: 20210107, end: 20210107
  68. POTASSIUM CHLORIDE [Concomitant]
     Active Substance: POTASSIUM CHLORIDE
     Dosage: 10 OTHER??Q2H
     Route: 048
     Dates: start: 20210108, end: 20210110
  69. ACYCLOVIR [Concomitant]
     Active Substance: ACYCLOVIR
     Route: 048
     Dates: start: 20201207, end: 20210409
  70. ACYCLOVIR [Concomitant]
     Active Substance: ACYCLOVIR
     Route: 048
     Dates: start: 20210106, end: 20210111
  71. COMPAZINE [Concomitant]
     Active Substance: PROCHLORPERAZINE MALEATE
     Route: 042
     Dates: start: 20210104, end: 20210104
  72. COMPAZINE [Concomitant]
     Active Substance: PROCHLORPERAZINE MALEATE
     Dosage: PRN
     Route: 048
     Dates: start: 20210104, end: 20210318
  73. BACTRIM [Concomitant]
     Active Substance: SULFAMETHOXAZOLE\TRIMETHOPRIM
     Route: 048
     Dates: start: 20201209
  74. CYTARABINE [Concomitant]
     Active Substance: CYTARABINE
     Route: 008
     Dates: start: 20201230, end: 20201230
  75. DEXAMETHASONE [Concomitant]
     Active Substance: DEXAMETHASONE
     Route: 042
     Dates: start: 20201215, end: 20201215
  76. DEXAMETHASONE [Concomitant]
     Active Substance: DEXAMETHASONE
     Route: 042
     Dates: start: 20201222, end: 20201222
  77. DEXTROSE;NACL [Concomitant]
     Route: 042
     Dates: start: 20210104, end: 20210104
  78. DOCUSATE [Concomitant]
     Active Substance: DOCUSATE
     Route: 048
     Dates: start: 20210105, end: 20210111
  79. FENTANYL [Concomitant]
     Active Substance: FENTANYL
     Route: 042
     Dates: start: 20201209, end: 20201209
  80. FENTANYL [Concomitant]
     Active Substance: FENTANYL
     Route: 042
     Dates: start: 20201215, end: 20201215
  81. LEVOFLOXACIN [Concomitant]
     Active Substance: LEVOFLOXACIN
     Route: 048
     Dates: start: 20201216, end: 20210405
  82. ALOXI [Concomitant]
     Active Substance: PALONOSETRON HYDROCHLORIDE
     Route: 042
     Dates: start: 20201229, end: 20201229

REACTIONS (1)
  - Neutropenic colitis [Recovered/Resolved]

NARRATIVE: CASE EVENT DATE: 20210104
